FAERS Safety Report 5084463-7 (Version None)
Quarter: 2006Q3

REPORT INFORMATION
  Report Type: 
  Country: None (occurrence: None)
  Receive Date: 20060815
  Receipt Date: 20060731
  Transmission Date: 20061208
  Serious: Yes (Other)
  Sender: FDA-Public Use
  Company Number: SP00929

PATIENT
  Age: 69 Year
  Sex: Female
  Weight: 62.5964 kg

DRUGS (5)
  1. COLAZAL [Suspect]
     Indication: COLITIS ULCERATIVE
     Dosage: 2.25G/TID, ORAL FOUR TO SIX CAPSULES/QD, ORAL
     Route: 048
     Dates: start: 20040101, end: 20060401
  2. COLAZAL [Suspect]
     Indication: COLITIS ULCERATIVE
     Dosage: 2.25G/TID, ORAL FOUR TO SIX CAPSULES/QD, ORAL
     Route: 048
     Dates: start: 20060401, end: 20060721
  3. HYDROCHLOROTHIAZIDE (UNKNOWN) [Concomitant]
  4. CLONAZEPAM [Concomitant]
  5. OXYGEN [Concomitant]

REACTIONS (6)
  - ABDOMINAL PAIN UPPER [None]
  - ASTHENIA [None]
  - BLOOD CALCIUM INCREASED [None]
  - BLOOD PARATHYROID HORMONE DECREASED [None]
  - FREQUENT BOWEL MOVEMENTS [None]
  - LIPASE INCREASED [None]
